FAERS Safety Report 4910843-3 (Version None)
Quarter: 2006Q1

REPORT INFORMATION
  Report Type: 
  Country: None (occurrence: None)
  Receive Date: 20060214
  Receipt Date: 20051226
  Transmission Date: 20060701
  Serious: Yes (Hospitalization)
  Sender: FDA-Public Use
  Company Number: J200504366

PATIENT
  Age: 4 Year
  Sex: Female

DRUGS (2)
  1. AMOXICILLIN [Suspect]
     Indication: BRONCHITIS
     Dosage: 200MG THREE TIMES PER DAY
     Route: 048
     Dates: start: 20051206, end: 20051214
  2. PERIACTIN [Concomitant]
     Route: 048
     Dates: start: 20051206, end: 20051227

REACTIONS (3)
  - DRUG HYPERSENSITIVITY [None]
  - ORAL PAIN [None]
  - RASH [None]
